FAERS Safety Report 25842651 (Version 2)
Quarter: 2025Q3

REPORT INFORMATION
  Report Type: Report from Study
  Country: US (occurrence: US)
  Receive Date: 20250924
  Receipt Date: 20250929
  Transmission Date: 20251021
  Serious: Yes (Other)
  Sender: ABBVIE
  Company Number: US-ABBVIE-6473774

PATIENT
  Age: 66 Year
  Sex: Female

DRUGS (1)
  1. RINVOQ [Suspect]
     Active Substance: UPADACITINIB
     Indication: Rheumatoid arthritis
     Dosage: FORM STRENGTH: 15 MILLIGRAM/KG/HR
     Route: 048
     Dates: start: 20240801

REACTIONS (9)
  - Squamous cell carcinoma of skin [Unknown]
  - Cellulitis [Recovered/Resolved]
  - Skin ulcer [Unknown]
  - Tooth discolouration [Unknown]
  - Alopecia [Recovering/Resolving]
  - Abdominal pain upper [Unknown]
  - Eye irritation [Unknown]
  - Fatigue [Unknown]
  - Wound complication [Unknown]

NARRATIVE: CASE EVENT DATE: 20240101
